FAERS Safety Report 25935680 (Version 1)
Quarter: 2025Q4

REPORT INFORMATION
  Report Type: Spontaneous
  Country: EU (occurrence: EU)
  Receive Date: 20251017
  Receipt Date: 20251017
  Transmission Date: 20260118
  Serious: Yes (Hospitalization, Other)
  Sender: SANOFI AVENTIS
  Company Number: None

PATIENT
  Age: 69 Year
  Sex: Male

DRUGS (12)
  1. ENOXAPARIN SODIUM [Suspect]
     Active Substance: ENOXAPARIN SODIUM
     Indication: Thrombosis prophylaxis
     Dosage: 40 MG, QD
     Route: 058
     Dates: start: 20240402, end: 20240411
  2. ALBUTEROL SULFATE [Concomitant]
     Active Substance: ALBUTEROL SULFATE
     Indication: Bronchitis chronic
     Dosage: 2.5 MG, Q8H
     Dates: start: 20230823
  3. Atroaldo [Concomitant]
     Indication: Bronchitis chronic
     Dosage: 40 UG, Q8H
     Dates: start: 20240111
  4. ALBUTEROL [Concomitant]
     Active Substance: ALBUTEROL
     Indication: Bronchitis chronic
     Dosage: 100 UG, Q8H
     Dates: start: 20230824
  5. ATROVENT [Concomitant]
     Active Substance: IPRATROPIUM BROMIDE
     Indication: Bronchitis chronic
     Dosage: 500 UG, Q8H
     Dates: start: 20230823
  6. CLOPIDOGREL [Concomitant]
     Active Substance: CLOPIDOGREL BISULFATE
     Indication: Coronary artery occlusion
     Dosage: 75 UG
     Route: 048
     Dates: start: 20230530
  7. PANTOPRAZOLE [Concomitant]
     Active Substance: PANTOPRAZOLE
     Indication: Haematemesis
     Dosage: 40 MG ,DE
     Route: 048
     Dates: start: 20230530
  8. DAPAGLIFLOZIN [Concomitant]
     Active Substance: DAPAGLIFLOZIN
     Indication: Type 2 diabetes mellitus
     Dosage: 10 MG, C/24 H AM
     Route: 048
     Dates: start: 20230530
  9. ESCITALOPRAM OXALATE [Concomitant]
     Active Substance: ESCITALOPRAM OXALATE
     Indication: Depression
     Dosage: 10 MG, DE
     Route: 048
     Dates: start: 20230530
  10. BECLOMETHASONE DIPROPIONATE\FORMOTEROL FUMARATE\GLYCOPYRROLATE [Concomitant]
     Active Substance: BECLOMETHASONE DIPROPIONATE\FORMOTEROL FUMARATE\GLYCOPYRROLATE
     Indication: Obstructive airways disorder
     Dosage: 2 PUFF C/12 H
     Dates: start: 20220216
  11. ENALAPRIL [Concomitant]
     Active Substance: ENALAPRIL
     Indication: Essential hypertension
     Dosage: 5 MG
     Route: 048
     Dates: start: 20230530
  12. BISOPROLOL FUMARATE [Concomitant]
     Active Substance: BISOPROLOL FUMARATE
     Indication: Coronary artery occlusion
     Dosage: 2.5 MG DE
     Route: 048
     Dates: start: 20230530

REACTIONS (1)
  - Abdominal wall haematoma [Recovered/Resolved]

NARRATIVE: CASE EVENT DATE: 20240411
